FAERS Safety Report 8557200-9 (Version None)
Quarter: 2012Q3

REPORT INFORMATION
  Report Type: 
  Country: None (occurrence: None)
  Receive Date: 20120801
  Receipt Date: 20120727
  Transmission Date: 20120928
  Serious: Yes (Hospitalization)
  Sender: FDA-Public Use
  Company Number: PHHY2012US064825

PATIENT
  Age: 17 Month
  Sex: Female

DRUGS (4)
  1. TOPIRAMATE [Concomitant]
     Dosage: 3 MG/KG/DAY
  2. OXCARBAZEPINE [Suspect]
     Indication: COMPLEX PARTIAL SEIZURES
     Dosage: 14 MG/KG/DAY
  3. TOPIRAMATE [Concomitant]
     Dosage: 9 MG/KG/DAY
  4. TOPIRAMATE [Concomitant]
     Dosage: 6 MG/KG/DAY

REACTIONS (10)
  - INFANTILE SPASMS [None]
  - POSTICTAL PARALYSIS [None]
  - MUSCLE SPASMS [None]
  - GAIT DISTURBANCE [None]
  - IRRITABILITY [None]
  - DEVELOPMENTAL DELAY [None]
  - DISTURBANCE IN ATTENTION [None]
  - APHASIA [None]
  - COMPLEX PARTIAL SEIZURES [None]
  - HYPOTONIA [None]
